FAERS Safety Report 16989842 (Version 2)
Quarter: 2020Q1

REPORT INFORMATION
  Report Type: Spontaneous
  Country: MY (occurrence: MY)
  Receive Date: 20191104
  Receipt Date: 20200116
  Transmission Date: 20200409
  Serious: Yes (Hospitalization)
  Sender: FDA-Public Use
  Company Number: MY-ACTELION-A-CH2019-197443

PATIENT
  Age: 40 Year
  Sex: Female

DRUGS (1)
  1. OPSUMIT [Suspect]
     Active Substance: MACITENTAN
     Indication: PULMONARY ARTERIAL HYPERTENSION
     Dosage: 10 MG, QD
     Route: 048
     Dates: start: 20181009

REACTIONS (5)
  - Dyspnoea [Recovering/Resolving]
  - Pneumonia [Recovering/Resolving]
  - Red blood cell count decreased [Recovering/Resolving]
  - General physical health deterioration [Recovering/Resolving]
  - Streptococcal infection [Recovering/Resolving]

NARRATIVE: CASE EVENT DATE: 20191010
